FAERS Safety Report 20990874 (Version 2)
Quarter: 2022Q3

REPORT INFORMATION
  Report Type: Spontaneous
  Country: US (occurrence: US)
  Receive Date: 20220622
  Receipt Date: 20220627
  Transmission Date: 20221026
  Serious: No
  Sender: FDA-Public Use
  Company Number: US-NOVARTISTESTPH-NVSC2022US141923

PATIENT
  Age: 55 Year
  Sex: Female

DRUGS (2)
  1. COMBIPATCH [Suspect]
     Active Substance: ESTRADIOL\NORETHINDRONE ACETATE
     Indication: Hormone replacement therapy
     Dosage: UNK
     Route: 062
     Dates: start: 2021
  2. COMBIPATCH [Suspect]
     Active Substance: ESTRADIOL\NORETHINDRONE ACETATE
     Dosage: UNK, (0.05/0.25 MILLIGRAM, 3 TO 4 DAYS)
     Route: 062
     Dates: start: 2022

REACTIONS (6)
  - Vaginal haemorrhage [Recovered/Resolved]
  - Device adhesion issue [Not Recovered/Not Resolved]
  - Device issue [Not Recovered/Not Resolved]
  - Product adhesion issue [Not Recovered/Not Resolved]
  - Product dose omission issue [Recovered/Resolved]
  - Product storage error [Not Recovered/Not Resolved]

NARRATIVE: CASE EVENT DATE: 20210101
